FAERS Safety Report 9714291 (Version 3)
Quarter: 2015Q3

REPORT INFORMATION
  Report Type: Spontaneous
  Country: US (occurrence: US)
  Receive Date: 20131126
  Receipt Date: 20150803
  Transmission Date: 20151125
  Serious: No
  Sender: FDA-Public Use
  Company Number: US-GILEAD-2008-0018873

PATIENT
  Age: 44 Year
  Sex: Female

DRUGS (1)
  1. LETAIRIS [Suspect]
     Active Substance: AMBRISENTAN

REACTIONS (6)
  - Paranasal sinus hypersecretion [Unknown]
  - Muscular weakness [Unknown]
  - Headache [Unknown]
  - Swelling [Unknown]
  - Abdominal discomfort [Unknown]
  - Hypoaesthesia oral [Unknown]
